FAERS Safety Report 18500212 (Version 1)
Quarter: 2020Q4

REPORT INFORMATION
  Report Type: Spontaneous
  Country: US (occurrence: US)
  Receive Date: 20201112
  Receipt Date: 20201112
  Transmission Date: 20210114
  Serious: No
  Sender: FDA-Public Use
  Company Number: None

PATIENT
  Age: 33 Year
  Sex: Female

DRUGS (1)
  1. HUMATROPE [Suspect]
     Active Substance: SOMATROPIN
     Route: 058
     Dates: start: 202001

REACTIONS (3)
  - Weight increased [None]
  - Fatigue [None]
  - Therapy cessation [None]

NARRATIVE: CASE EVENT DATE: 20200211
